FAERS Safety Report 5759038-4 (Version None)
Quarter: 2008Q2

REPORT INFORMATION
  Report Type: 
  Country: None (occurrence: None)
  Receive Date: 20080604
  Receipt Date: 20080529
  Transmission Date: 20081010
  Serious: Yes (Hospitalization)
  Sender: FDA-Public Use
  Company Number: IT-SANOFI-SYNTHELABO-A06200800280

PATIENT
  Sex: Female

DRUGS (3)
  1. ELOXATIN [Suspect]
     Indication: COLON CANCER
     Route: 041
     Dates: start: 20061107, end: 20061107
  2. FLUOROURACIL [Concomitant]
     Indication: COLON CANCER
     Route: 042
     Dates: start: 20061107, end: 20061107
  3. LEDERFOLIN [Concomitant]
     Indication: COLON CANCER
     Route: 042
     Dates: start: 20061107, end: 20061107

REACTIONS (1)
  - ACUTE MYOCARDIAL INFARCTION [None]
